FAERS Safety Report 20546289 (Version 1)
Quarter: 2022Q1

REPORT INFORMATION
  Report Type: Spontaneous
  Country: US (occurrence: US)
  Receive Date: 20220303
  Receipt Date: 20220303
  Transmission Date: 20220423
  Serious: No
  Sender: FDA-Public Use
  Company Number: US-ALLERGAN-2101132US

PATIENT
  Age: 73 Year
  Sex: Male

DRUGS (1)
  1. RESTASIS [Suspect]
     Active Substance: CYCLOSPORINE
     Indication: Dry eye
     Dosage: 2 GTT, BID
     Route: 047
     Dates: end: 202101

REACTIONS (4)
  - Blood pressure fluctuation [Recovered/Resolved]
  - Inappropriate schedule of product administration [Unknown]
  - Pain [Recovered/Resolved]
  - Vision blurred [Recovered/Resolved]
